FAERS Safety Report 21173444 (Version 1)
Quarter: 2022Q3

REPORT INFORMATION
  Report Type: Spontaneous
  Country: US (occurrence: None)
  Receive Date: 20220804
  Receipt Date: 20220804
  Transmission Date: 20221026
  Serious: Yes (Life-Threatening, Disabling, Other)
  Sender: FDA-Public Use
  Company Number: None

PATIENT
  Age: 51 Year
  Sex: Female
  Weight: 90 kg

DRUGS (1)
  1. SINGULAIR [Suspect]
     Active Substance: MONTELUKAST SODIUM
     Indication: Asthma
     Dates: start: 20100810, end: 20201030

REACTIONS (11)
  - Mental disorder [None]
  - Nervous system disorder [None]
  - Nightmare [None]
  - Mood swings [None]
  - Depression [None]
  - Insomnia [None]
  - Depressed level of consciousness [None]
  - Anxiety [None]
  - Tremor [None]
  - Electric shock sensation [None]
  - Suicidal ideation [None]

NARRATIVE: CASE EVENT DATE: 20201030
